FAERS Safety Report 14604170 (Version 1)
Quarter: 2018Q1

REPORT INFORMATION
  Report Type: Spontaneous
  Country: US (occurrence: US)
  Receive Date: 20180305
  Receipt Date: 20180305
  Transmission Date: 20180509
  Serious: Yes (Other)
  Sender: FDA-Public Use
  Company Number: None

PATIENT
  Age: 63 Year
  Sex: Male
  Weight: 81 kg

DRUGS (1)
  1. CIPROFLAXIN [Suspect]
     Active Substance: CIPROFLOXACIN
     Indication: CYSTITIS
     Dosage: ?          QUANTITY:1 CAPSULE(S);?
     Route: 048

REACTIONS (1)
  - Tendon disorder [None]

NARRATIVE: CASE EVENT DATE: 20170306
